FAERS Safety Report 5171483-7 (Version None)
Quarter: 2006Q4

REPORT INFORMATION
  Report Type: 
  Country: None (occurrence: None)
  Receive Date: 20061208
  Receipt Date: 20061208
  Transmission Date: 20070319
  Serious: No
  Sender: FDA-Public Use
  Company Number: None

PATIENT
  Sex: Female

DRUGS (2)
  1. REQUIP [Suspect]
     Dosage: 1 MG X3 Q 8 HOURS
     Dates: start: 19910101
  2. SINEMET [Concomitant]

REACTIONS (7)
  - ALOPECIA [None]
  - ASTHENIA [None]
  - BODY TEMPERATURE DECREASED [None]
  - CARDIAC DISORDER [None]
  - GASTRIC DISORDER [None]
  - OSTEOPOROSIS [None]
  - POLLAKIURIA [None]
